FAERS Safety Report 24468203 (Version 1)
Quarter: 2024Q4

REPORT INFORMATION
  Report Type: Spontaneous
  Country: CA (occurrence: CA)
  Receive Date: 20241018
  Receipt Date: 20241018
  Transmission Date: 20250115
  Serious: Yes (Other)
  Sender: ALEXION PHARMACEUTICALS
  Company Number: CA-AstraZeneca-2024A202793

PATIENT
  Age: 78 Year

DRUGS (34)
  1. ACALABRUTINIB [Suspect]
     Active Substance: ACALABRUTINIB
     Indication: Chronic lymphocytic leukaemia
     Dosage: DOSE UNKNOWN
  2. ACALABRUTINIB [Suspect]
     Active Substance: ACALABRUTINIB
     Dosage: DOSE UNKNOWN
  3. ACALABRUTINIB [Suspect]
     Active Substance: ACALABRUTINIB
     Dosage: DOSE UNKNOWN
  4. ACALABRUTINIB [Suspect]
     Active Substance: ACALABRUTINIB
     Dosage: DOSE UNKNOWN
  5. ACALABRUTINIB [Suspect]
     Active Substance: ACALABRUTINIB
     Dosage: DOSE UNKNOWN
  6. ACALABRUTINIB [Suspect]
     Active Substance: ACALABRUTINIB
     Dosage: DOSE UNKNOWN
  7. ACALABRUTINIB [Suspect]
     Active Substance: ACALABRUTINIB
     Dosage: DOSE UNKNOWN
  8. ACALABRUTINIB [Suspect]
     Active Substance: ACALABRUTINIB
     Dosage: DOSE UNKNOWN
  9. TRUQAP [Suspect]
     Active Substance: CAPIVASERTIB
     Indication: Breast cancer metastatic
     Dosage: 400 MILLIGRAM, BID
  10. TRUQAP [Suspect]
     Active Substance: CAPIVASERTIB
     Dosage: 400 MILLIGRAM, BID
  11. TRUQAP [Suspect]
     Active Substance: CAPIVASERTIB
     Dosage: 400 MILLIGRAM, BID
  12. TRUQAP [Suspect]
     Active Substance: CAPIVASERTIB
     Dosage: 400 MILLIGRAM, BID
  13. FASLODEX [Suspect]
     Active Substance: FULVESTRANT
     Indication: Breast cancer metastatic
     Dosage: 500 MILLIGRAM, UNK, FREQUENCY: Q4WK
  14. FASLODEX [Suspect]
     Active Substance: FULVESTRANT
     Dosage: 500 MILLIGRAM, UNK, FREQUENCY: Q4WK
  15. FASLODEX [Suspect]
     Active Substance: FULVESTRANT
     Dosage: 500 MILLIGRAM, UNK, FREQUENCY: Q4WK
  16. FASLODEX [Suspect]
     Active Substance: FULVESTRANT
     Dosage: 500 MILLIGRAM, UNK, FREQUENCY: Q4WK
  17. UNSPECIFIED INGREDIENT [Concomitant]
     Active Substance: UNSPECIFIED INGREDIENT
     Indication: Hyperlipidaemia
     Dosage: DOSE UNKNOWN
  18. UNSPECIFIED INGREDIENT [Concomitant]
     Active Substance: UNSPECIFIED INGREDIENT
     Dosage: DOSE UNKNOWN
  19. UNSPECIFIED INGREDIENT [Concomitant]
     Active Substance: UNSPECIFIED INGREDIENT
     Dosage: DOSE UNKNOWN
  20. UNSPECIFIED INGREDIENT [Concomitant]
     Active Substance: UNSPECIFIED INGREDIENT
     Dosage: DOSE UNKNOWN
  21. ACETAMINOPHEN [Concomitant]
     Active Substance: ACETAMINOPHEN
     Dosage: UNK
     Route: 065
  22. ACETAMINOPHEN [Concomitant]
     Active Substance: ACETAMINOPHEN
     Dosage: UNK
  23. ACETAMINOPHEN [Concomitant]
     Active Substance: ACETAMINOPHEN
     Dosage: 1000 MILLIGRAM
     Route: 065
  24. ACETAMINOPHEN [Concomitant]
     Active Substance: ACETAMINOPHEN
     Dosage: 1000 MILLIGRAM
  25. METOCLOPRAMIDE [Concomitant]
     Active Substance: METOCLOPRAMIDE
     Indication: Vomiting
  26. METOCLOPRAMIDE [Concomitant]
     Active Substance: METOCLOPRAMIDE
     Indication: Dizziness
     Route: 065
  27. ADENOSINE TRIPHOSPHATE [Concomitant]
     Active Substance: ADENOSINE TRIPHOSPHATE
  28. ADENOSINE TRIPHOSPHATE [Concomitant]
     Active Substance: ADENOSINE TRIPHOSPHATE
     Route: 065
  29. BETAHISTINE [Concomitant]
     Active Substance: BETAHISTINE
  30. BETAHISTINE [Concomitant]
     Active Substance: BETAHISTINE
     Route: 065
  31. Topical [Concomitant]
     Indication: Pruritus
  32. Topical [Concomitant]
     Indication: Purpura
     Route: 065
  33. VALACYCLOVIR [Concomitant]
     Active Substance: VALACYCLOVIR HYDROCHLORIDE
     Indication: Herpes zoster
  34. VALACYCLOVIR [Concomitant]
     Active Substance: VALACYCLOVIR HYDROCHLORIDE
     Route: 065

REACTIONS (8)
  - Ascites [Unknown]
  - Headache [Recovering/Resolving]
  - Vomiting [Unknown]
  - Dizziness [Recovering/Resolving]
  - Purpura [Unknown]
  - Erythema [Unknown]
  - Herpes zoster [Unknown]
  - Blister [Unknown]
